FAERS Safety Report 19242147 (Version 2)
Quarter: 2021Q4

REPORT INFORMATION
  Report Type: Spontaneous
  Country: GB (occurrence: GB)
  Receive Date: 20210511
  Receipt Date: 20211122
  Transmission Date: 20220303
  Serious: Yes (Disabling, Other)
  Sender: FDA-Public Use
  Company Number: None

PATIENT
  Age: 27 Year
  Sex: Male
  Weight: 77 kg

DRUGS (1)
  1. FINASTERIDE [Suspect]
     Active Substance: FINASTERIDE
     Indication: Alopecia
     Route: 048
     Dates: start: 20210401, end: 20210421

REACTIONS (11)
  - Taste disorder [Not Recovered/Not Resolved]
  - Depressed level of consciousness [Unknown]
  - Sleep disorder [Unknown]
  - Sensory disturbance [Not Recovered/Not Resolved]
  - Anosmia [Not Recovered/Not Resolved]
  - Parosmia [Unknown]
  - Taste disorder [Unknown]
  - Loss of libido [Unknown]
  - Pain [Not Recovered/Not Resolved]
  - Testicular pain [Unknown]
  - Erectile dysfunction [Unknown]

NARRATIVE: CASE EVENT DATE: 20210416
